FAERS Safety Report 6655854-5 (Version None)
Quarter: 2010Q1

REPORT INFORMATION
  Report Type: 
  Country: None (occurrence: None)
  Receive Date: 20100329
  Receipt Date: 20100323
  Transmission Date: 20100710
  Serious: Yes (Other)
  Sender: FDA-Public Use
  Company Number: A0851608A

PATIENT
  Age: 66 Year
  Sex: Male

DRUGS (2)
  1. SORIATANE [Suspect]
     Indication: PSORIASIS
     Dosage: 25MG PER DAY
     Route: 048
     Dates: start: 20100209
  2. LOVAZA [Concomitant]

REACTIONS (6)
  - CHAPPED LIPS [None]
  - CHILLS [None]
  - DRY MOUTH [None]
  - LIP DRY [None]
  - PSORIASIS [None]
  - PYREXIA [None]
